FAERS Safety Report 25266278 (Version 1)
Quarter: 2025Q2

REPORT INFORMATION
  Report Type: Spontaneous
  Country: US (occurrence: US)
  Receive Date: 20250504
  Receipt Date: 20250504
  Transmission Date: 20250716
  Serious: Yes (Other)
  Sender: BAUSCH AND LOMB
  Company Number: US-BAUSCHBL-2025BNL006436

PATIENT
  Sex: Female

DRUGS (1)
  1. BLINK GEL TEARS [Suspect]
     Active Substance: POLYETHYLENE GLYCOL 400
     Indication: Product used for unknown indication
     Route: 047

REACTIONS (7)
  - Road traffic accident [Unknown]
  - Ocular discomfort [Unknown]
  - Dry eye [Unknown]
  - Product residue present [Unknown]
  - Accidental exposure to product [Unknown]
  - Liquid product physical issue [Unknown]
  - Exposure via skin contact [Unknown]
